FAERS Safety Report 10189639 (Version 1)
Quarter: 2014Q2

REPORT INFORMATION
  Report Type: Spontaneous
  Country: DK (occurrence: DK)
  Receive Date: 20140522
  Receipt Date: 20140522
  Transmission Date: 20141212
  Serious: Yes (Life-Threatening)
  Sender: FDA-Public Use
  Company Number: DK-GLAXOSMITHKLINE-B0995816A

PATIENT
  Age: 26 Year
  Sex: Female

DRUGS (3)
  1. ZOFRAN [Suspect]
     Indication: NAUSEA
     Route: 042
     Dates: start: 20140224, end: 20140224
  2. SYNTOCINON [Concomitant]
     Dates: start: 20140224, end: 20140224
  3. CEFUROXIM [Concomitant]
     Dates: start: 20140224, end: 20140224

REACTIONS (5)
  - Respiratory arrest [Recovered/Resolved]
  - Loss of consciousness [Recovered/Resolved]
  - Bradycardia [Recovered/Resolved]
  - Muscle spasms [Recovered/Resolved]
  - Lip swelling [Recovered/Resolved]
